FAERS Safety Report 4459777-1 (Version None)
Quarter: 2004Q3

REPORT INFORMATION
  Report Type: 
  Country: None (occurrence: None)
  Receive Date: 20040928
  Receipt Date: 20040426
  Transmission Date: 20050211
  Serious: No
  Sender: FDA-Public Use
  Company Number: US-BRISTOL-MYERS SQUIBB COMPANY-12571410

PATIENT
  Age: 33 Year
  Sex: Female
  Weight: 64 kg

DRUGS (3)
  1. KENALOG-40 [Suspect]
     Indication: BACK PAIN
     Dosage: RECEIVED INJECTIONS ON 03-MAR-04 AND 15-MAR-04
     Route: 008
  2. VITAMIN SUPPLEMENT [Concomitant]
  3. LOESTRIN 1.5/30 [Concomitant]

REACTIONS (1)
  - HAIR COLOUR CHANGES [None]
